FAERS Safety Report 5467197-6 (Version None)
Quarter: 2007Q3

REPORT INFORMATION
  Report Type: 
  Country: None (occurrence: None)
  Receive Date: 20070925
  Receipt Date: 20070323
  Transmission Date: 20080115
  Serious: Yes (Death)
  Sender: FDA-Public Use
  Company Number: PH-ASTRAZENECA-2007AP01555

PATIENT
  Age: 52 Year
  Sex: Female

DRUGS (3)
  1. MERONEM [Suspect]
     Indication: MENINGITIS
     Route: 042
     Dates: start: 20070212, end: 20070303
  2. VANCOMYCIN [Concomitant]
     Indication: MENINGITIS
  3. CEFTAZIDIME [Concomitant]
     Indication: MENINGITIS

REACTIONS (1)
  - POOR QUALITY DRUG ADMINISTERED [None]
